FAERS Safety Report 17594556 (Version 1)
Quarter: 2020Q1

REPORT INFORMATION
  Report Type: Spontaneous
  Country: US (occurrence: US)
  Receive Date: 20200327
  Receipt Date: 20200327
  Transmission Date: 20200409
  Serious: No
  Sender: FDA-Public Use
  Company Number: US-GLAXOSMITHKLINE-US2020049600

PATIENT
  Sex: Male

DRUGS (3)
  1. ALLI [Suspect]
     Active Substance: ORLISTAT
     Dosage: UNK
  2. ALLI [Suspect]
     Active Substance: ORLISTAT
     Indication: WEIGHT LOSS DIET
     Dosage: UNK
  3. ALLI [Suspect]
     Active Substance: ORLISTAT
     Dosage: UNK

REACTIONS (2)
  - Rectal discharge [Unknown]
  - Drug ineffective [Unknown]
